FAERS Safety Report 10586968 (Version 1)
Quarter: 2014Q4

REPORT INFORMATION
  Report Type: Spontaneous
  Country: US (occurrence: None)
  Receive Date: 20141114
  Receipt Date: 20141114
  Transmission Date: 20150529
  Serious: Yes (Hospitalization)
  Sender: FDA-Public Use
  Company Number: None

PATIENT
  Age: 20 Year
  Sex: Female
  Weight: 53.2 kg

DRUGS (1)
  1. ACETYLCYSTEINE. [Suspect]
     Active Substance: ACETYLCYSTEINE
     Indication: OVERDOSE
     Dosage: LOADING 150 MG/KG; MAINTENANCE 15MG/KG/HR CONTINUOUS IV
     Route: 042
     Dates: start: 20140706, end: 20140706

REACTIONS (2)
  - Respiratory distress [None]
  - Hypersensitivity [None]

NARRATIVE: CASE EVENT DATE: 20140706
